FAERS Safety Report 7850687-6 (Version None)
Quarter: 2011Q4

REPORT INFORMATION
  Report Type: 
  Country: None (occurrence: None)
  Receive Date: 20111024
  Receipt Date: 20111010
  Transmission Date: 20120403
  Serious: Yes (Other)
  Sender: FDA-Public Use
  Company Number: TPA2011A06623

PATIENT
  Age: 68 Year
  Sex: Female

DRUGS (6)
  1. CRESTOR [Concomitant]
  2. AMARYL [Concomitant]
  3. ACTOS [Suspect]
     Dosage: 30 MG, 1 IN 1 D, PER ORAL; 45 MG, 1 IN 1 D, PER ORAL
     Route: 048
     Dates: start: 20010101
  4. ASPIRIN (ACETYLALICYIC ACID) [Concomitant]
  5. LEVOTHYROID (LEVOTHYROID) [Concomitant]
  6. MIRALEX (MACROGOL) [Concomitant]

REACTIONS (1)
  - BLADDER CANCER [None]
